FAERS Safety Report 17697511 (Version 3)
Quarter: 2020Q3

REPORT INFORMATION
  Report Type: Spontaneous
  Country: AT (occurrence: AT)
  Receive Date: 20200423
  Receipt Date: 20200804
  Transmission Date: 20201102
  Serious: Yes (Death)
  Sender: FDA-Public Use
  Company Number: AT-ROCHE-2585941

PATIENT
  Sex: Male
  Weight: 110 kg

DRUGS (22)
  1. XARELTO [Concomitant]
     Active Substance: RIVAROXABAN
     Indication: DEEP VEIN THROMBOSIS
     Route: 048
  2. KETANEST [Concomitant]
  3. EMPRESSIN [Concomitant]
  4. ALUVIA [Concomitant]
     Active Substance: LOPINAVIR\RITONAVIR
     Dates: start: 20200401, end: 20200405
  5. ULTIVA [Concomitant]
     Active Substance: REMIFENTANIL HYDROCHLORIDE
  6. PROPOFOL. [Concomitant]
     Active Substance: PROPOFOL
     Dosage: 2 %
  7. SOLU?CORTEF [Concomitant]
     Active Substance: HYDROCORTISONE SODIUM SUCCINATE
     Route: 042
  8. ZINKOROTAT [Concomitant]
     Active Substance: ZINC OROTATE
     Route: 048
  9. CEFEPIM [Concomitant]
     Active Substance: CEFEPIME HYDROCHLORIDE
     Dates: start: 20200410
  10. SMOFKABIVEN [Concomitant]
     Active Substance: AMINO ACIDS\DEXTROSE\ELECTROLYTES NOS\SOYBEAN OIL
     Route: 042
  11. RESOCHIN [Concomitant]
     Active Substance: NIFEDIPINE
     Dates: start: 20200401, end: 20200406
  12. ARTERENOL [Concomitant]
     Active Substance: NOREPINEPHRINE HYDROCHLORIDE, (+/-)-
  13. SUPRARENIN [Concomitant]
     Active Substance: EPINEPHRINE
  14. PIPERACILLIN/TAZOBACTAM [Concomitant]
     Active Substance: PIPERACILLIN SODIUM\TAZOBACTAM SODIUM
     Dates: start: 20200401, end: 20200406
  15. CEVITOL [Concomitant]
     Route: 042
  16. PANTOLOC [Concomitant]
     Active Substance: PANTOPRAZOLE SODIUM
     Route: 042
  17. CLARITHROMYCIN. [Concomitant]
     Active Substance: CLARITHROMYCIN
     Dates: start: 20200331, end: 20200405
  18. ECALTA [Concomitant]
     Active Substance: ANIDULAFUNGIN
     Dates: start: 20200411
  19. INSULIN [Concomitant]
     Active Substance: INSULIN NOS
  20. DEXDOR [Concomitant]
     Active Substance: DEXMEDETOMIDINE HYDROCHLORIDE
  21. SELENASE [Concomitant]
     Route: 042
  22. ROACTEMRA [Suspect]
     Active Substance: TOCILIZUMAB
     Indication: COVID-19
     Dosage: 1 ADMINISTRATION
     Route: 042
     Dates: start: 20200410, end: 20200410

REACTIONS (7)
  - Sepsis [Fatal]
  - Off label use [Unknown]
  - Multiple organ dysfunction syndrome [Fatal]
  - Acute respiratory distress syndrome [Fatal]
  - COVID-19 pneumonia [Fatal]
  - Klebsiella test positive [Fatal]
  - Product use in unapproved indication [Unknown]
